FAERS Safety Report 7765810-1 (Version None)
Quarter: 2011Q3

REPORT INFORMATION
  Report Type: 
  Country: None (occurrence: None)
  Receive Date: 20110921
  Receipt Date: 20110915
  Transmission Date: 20111222
  Serious: Yes (Life-Threatening, Hospitalization)
  Sender: FDA-Public Use
  Company Number: DE-CEPHALON-2011004961

PATIENT
  Sex: Male
  Weight: 95 kg

DRUGS (4)
  1. RITUXIMAB [Suspect]
     Indication: MANTLE CELL LYMPHOMA
     Dates: start: 20110816, end: 20110906
  2. RAMIPRIL [Suspect]
     Indication: HYPERTENSION
  3. TEMSIROLIMUS [Suspect]
     Indication: MANTLE CELL LYMPHOMA
     Dates: start: 20110818, end: 20110906
  4. TREANDA [Suspect]
     Indication: MANTLE CELL LYMPHOMA
     Route: 042
     Dates: start: 20110817, end: 20110906

REACTIONS (1)
  - ANGIOEDEMA [None]
